FAERS Safety Report 4953827-1 (Version None)
Quarter: 2006Q1

REPORT INFORMATION
  Report Type: 
  Country: None (occurrence: None)
  Receive Date: 20060324
  Receipt Date: 20060324
  Transmission Date: 20060701
  Serious: No
  Sender: FDA-Public Use
  Company Number: None

PATIENT
  Age: 75 Year
  Sex: Male
  Weight: 83.1 kg

DRUGS (1)
  1. HEPARIN [Suspect]

REACTIONS (1)
  - HEPARIN-INDUCED THROMBOCYTOPENIA [None]
